FAERS Safety Report 10159180 (Version 2)
Quarter: 2014Q2

REPORT INFORMATION
  Report Type: Spontaneous
  Country: FR (occurrence: FR)
  Receive Date: 20140508
  Receipt Date: 20140527
  Transmission Date: 20141212
  Serious: Yes (Disabling)
  Sender: FDA-Public Use
  Company Number: FR-ACCORD-023513

PATIENT
  Age: 64 Year
  Sex: Male
  Weight: 89 kg

DRUGS (4)
  1. ACCORD FLUOROURACIL [Suspect]
     Indication: COLON CANCER
     Dosage: PATIENT RECEIVE ITS 13TH CURE FOLFIRI -CETUXIMAB
     Route: 042
     Dates: start: 20140305, end: 20140307
  2. FOLINIC ACID [Suspect]
     Indication: COLON CANCER
     Dosage: PATIENT RECEIVE ITS 13TH CURE FOLFIRI -CETUXIMAB
     Dates: start: 20140305
  3. IRINOTECAN [Suspect]
     Indication: COLON CANCER
     Dosage: PATIENT RECEIVE ITS 13TH CURE FOLFIRI -CETUXIMAB
     Dates: start: 20140305
  4. CETUXIMAB [Suspect]
     Indication: COLON CANCER
     Dosage: PATIENT RECEIVE ITS 13TH CURE FOLFIRI -CETUXIMAB
     Dates: start: 20140305

REACTIONS (2)
  - Mucosal inflammation [Not Recovered/Not Resolved]
  - Incorrect drug administration duration [Recovered/Resolved]
